FAERS Safety Report 13856032 (Version 3)
Quarter: 2022Q1

REPORT INFORMATION
  Report Type: Spontaneous
  Country: FR (occurrence: FR)
  Receive Date: 20170810
  Receipt Date: 20220322
  Transmission Date: 20220423
  Serious: Yes (Other)
  Sender: FDA-Public Use
  Company Number: FR-ABBVIE-17P-056-2067913-00

PATIENT
  Age: 28 Year
  Sex: Female

DRUGS (4)
  1. VALPROATE SODIUM [Suspect]
     Active Substance: VALPROATE SODIUM
     Indication: Epilepsy
     Dosage: DOSE: 2 COFFEE SPOONS IN THE MORNING, AT MIDDAY AND IN THE EVENING
     Route: 048
     Dates: start: 197911
  2. VALPROATE SODIUM [Suspect]
     Active Substance: VALPROATE SODIUM
     Route: 048
     Dates: start: 198101
  3. VALPROATE SODIUM [Suspect]
     Active Substance: VALPROATE SODIUM
     Route: 048
  4. VALPROATE SODIUM [Suspect]
     Active Substance: VALPROATE SODIUM
     Route: 048

REACTIONS (4)
  - Product dose omission issue [Unknown]
  - Epilepsy [Unknown]
  - Malaise [Unknown]
  - Postictal state [Unknown]

NARRATIVE: CASE EVENT DATE: 19900101
